FAERS Safety Report 14114821 (Version 1)
Quarter: 2017Q4

REPORT INFORMATION
  Report Type: Report from Study
  Country: None (occurrence: BR)
  Receive Date: 20171023
  Receipt Date: 20171023
  Transmission Date: 20180321
  Serious: Yes (Hospitalization, Other)
  Sender: FDA-Public Use
  Company Number: BR-ABBVIE-17K-020-2136021-00

PATIENT
  Age: 43 Year
  Sex: Female
  Weight: 78 kg

DRUGS (2)
  1. HUMIRA [Suspect]
     Active Substance: ADALIMUMAB
     Indication: ANKYLOSING SPONDYLITIS
     Route: 058
     Dates: start: 20160301
  2. CODEIN [Suspect]
     Active Substance: CODEINE
     Indication: PAIN
     Route: 065

REACTIONS (11)
  - Injection site pain [Recovered/Resolved]
  - Injection site pain [Recovering/Resolving]
  - Hepatotoxicity [Recovered/Resolved]
  - Premenstrual syndrome [Not Recovered/Not Resolved]
  - Vomiting [Recovered/Resolved]
  - Immunodeficiency [Not Recovered/Not Resolved]
  - Depression [Unknown]
  - Injection site pain [Recovered/Resolved]
  - Food allergy [Not Recovered/Not Resolved]
  - Musculoskeletal pain [Recovering/Resolving]
  - Pruritus [Unknown]

NARRATIVE: CASE EVENT DATE: 20160301
